FAERS Safety Report 22005811 (Version 1)
Quarter: 2023Q1

REPORT INFORMATION
  Report Type: Spontaneous
  Country: NL (occurrence: NL)
  Receive Date: 20230217
  Receipt Date: 20230217
  Transmission Date: 20230417
  Serious: Yes (Life-Threatening, Other)
  Sender: FDA-Public Use
  Company Number: None

PATIENT
  Sex: Female
  Weight: 65 kg

DRUGS (1)
  1. DILTIAZEM [Suspect]
     Active Substance: DILTIAZEM
     Indication: Myocardial infarction
     Dosage: 60 GRAM, 12 MINUTES (2 X 60)
     Route: 065
     Dates: start: 20110301, end: 20110415

REACTIONS (6)
  - Electrocardiogram QT prolonged [Recovered/Resolved]
  - Arrhythmia [Unknown]
  - Chest pain [Unknown]
  - Fluid retention [Unknown]
  - Nausea [Unknown]
  - Dizziness [Unknown]
